FAERS Safety Report 5427358-9 (Version None)
Quarter: 2007Q3

REPORT INFORMATION
  Report Type: 
  Country: None (occurrence: None)
  Receive Date: 20070828
  Receipt Date: 20070820
  Transmission Date: 20080115
  Serious: Yes (Other)
  Sender: FDA-Public Use
  Company Number: GB-AVENTIS-200717658GDDC

PATIENT
  Age: 37 Year
  Sex: Female

DRUGS (4)
  1. METRONIDAZOLE [Suspect]
     Route: 048
     Dates: start: 20070720, end: 20070728
  2. CEPHALEXIN [Suspect]
     Route: 048
     Dates: start: 20070720, end: 20070728
  3. DICLOFENAC SODIUM [Concomitant]
     Indication: PAIN
     Route: 048
     Dates: start: 20070720
  4. PARACETAMOL [Concomitant]
     Dates: start: 20070720

REACTIONS (1)
  - ARTHRALGIA [None]
